FAERS Safety Report 6882039-X (Version None)
Quarter: 2010Q3

REPORT INFORMATION
  Report Type: 
  Country: None (occurrence: None)
  Receive Date: 20100729
  Receipt Date: 20100720
  Transmission Date: 20110219
  Serious: Yes (Other)
  Sender: FDA-Public Use
  Company Number: GB-ASTRAZENECA-2010SE33707

PATIENT
  Sex: Male

DRUGS (3)
  1. ATENOLOL [Suspect]
     Indication: BLOOD PRESSURE
     Route: 048
  2. DIAZEPAM [Concomitant]
  3. TEGRETOL [Concomitant]

REACTIONS (1)
  - EPILEPSY [None]
